FAERS Safety Report 5320048-2 (Version None)
Quarter: 2007Q2

REPORT INFORMATION
  Report Type: 
  Country: None (occurrence: None)
  Receive Date: 20070509
  Receipt Date: 20040130
  Transmission Date: 20071010
  Serious: Yes (Death, Other)
  Sender: FDA-Public Use
  Company Number: PL-AVENTIS-200711077EU

PATIENT
  Age: 91 Year
  Sex: Male
  Weight: 67 kg

DRUGS (1)
  1. CLEXANE [Suspect]
     Route: 058

REACTIONS (2)
  - GASTROINTESTINAL HAEMORRHAGE [None]
  - PULMONARY EMBOLISM [None]
